FAERS Safety Report 6234738-0 (Version None)
Quarter: 2009Q2

REPORT INFORMATION
  Report Type: 
  Country: None (occurrence: None)
  Receive Date: 20090615
  Receipt Date: 20090219
  Transmission Date: 20091009
  Serious: No
  Sender: FDA-Public Use
  Company Number: DSA_33259_2009

PATIENT
  Sex: Male

DRUGS (3)
  1. XENAZINE [Suspect]
     Indication: HUNTINGTON'S CHOREA
     Dosage: 2 DF QD
     Dates: start: 20090206, end: 20090208
  2. PAXIL [Concomitant]
  3. EYE DROPS [Concomitant]

REACTIONS (2)
  - INSOMNIA [None]
  - RESTLESSNESS [None]
